FAERS Safety Report 4996276-2 (Version None)
Quarter: 2006Q2

REPORT INFORMATION
  Report Type: 
  Country: None (occurrence: None)
  Receive Date: 20060509
  Receipt Date: 20060306
  Transmission Date: 20061013
  Serious: Yes (Other)
  Sender: FDA-Public Use
  Company Number: 2006UW03764

PATIENT
  Age: 47 Year
  Sex: Female
  Weight: 48.6 kg

DRUGS (3)
  1. NEXIUM [Suspect]
     Indication: GASTROOESOPHAGEAL REFLUX DISEASE
     Route: 048
     Dates: start: 20060301, end: 20060406
  2. ACIPHEX [Concomitant]
     Dates: start: 20060201, end: 20060302
  3. ASPIRIN [Concomitant]

REACTIONS (7)
  - ATRIAL FIBRILLATION [None]
  - CHEST PAIN [None]
  - CHILLS [None]
  - EXTRASYSTOLES [None]
  - GASTRITIS [None]
  - GASTROOESOPHAGEAL REFLUX DISEASE [None]
  - TACHYCARDIA [None]
